FAERS Safety Report 18004983 (Version 1)
Quarter: 2020Q3

REPORT INFORMATION
  Report Type: Spontaneous
  Country: US (occurrence: US)
  Receive Date: 20200709
  Receipt Date: 20200709
  Transmission Date: 20201103
  Serious: Yes (Other)
  Sender: FDA-Public Use
  Company Number: None

PATIENT
  Age: 71 Year
  Sex: Female
  Weight: 77.3 kg

DRUGS (10)
  1. HEPARIN SODIUM 5,000 UNITS SQ Q8H [Concomitant]
     Dates: start: 20200704, end: 20200709
  2. NOREPINEPHRINE. [Concomitant]
     Active Substance: NOREPINEPHRINE
     Dates: start: 20200704, end: 20200707
  3. CEFEPIME 2 GM IV Q12H [Concomitant]
     Dates: start: 20200704, end: 20200709
  4. MAGNESIUM SULFATE 4 GM IV [Concomitant]
     Dates: start: 20200704, end: 20200704
  5. HYDROMORPHONE IV [Concomitant]
     Dates: start: 20200704, end: 20200707
  6. DEXAMETHASONE 6 MG IV Q24H [Concomitant]
     Dates: start: 20200705, end: 20200709
  7. VANCOMYCIN [Concomitant]
     Active Substance: VANCOMYCIN
     Dates: start: 20200704, end: 20200705
  8. REMDESIVIR. [Suspect]
     Active Substance: REMDESIVIR
     Indication: COVID-19
     Route: 041
     Dates: start: 20200704, end: 20200708
  9. AZITHROMYCIN 500 MG IV Q24H [Concomitant]
     Dates: start: 20200704, end: 20200704
  10. FAMOTIDINE 20 MG IV Q12H [Concomitant]
     Dates: start: 20200704, end: 20200709

REACTIONS (1)
  - Liver function test increased [None]

NARRATIVE: CASE EVENT DATE: 20200709
